FAERS Safety Report 8675566 (Version 6)
Quarter: 2013Q2

REPORT INFORMATION
  Report Type: Spontaneous
  Country: US (occurrence: US)
  Receive Date: 20120720
  Receipt Date: 20130628
  Transmission Date: 20140414
  Serious: Yes (Hospitalization, Disabling, Other)
  Sender: FDA-Public Use
  Company Number: US-009507513-1207USA004087

PATIENT
  Sex: Female
  Weight: 68.93 kg

DRUGS (8)
  1. FOSAMAX [Suspect]
     Indication: OSTEOPOROSIS
     Dosage: 10 MG, UNK
     Route: 048
     Dates: start: 199509, end: 200310
  2. FOSAMAX [Suspect]
     Dosage: 70 MG, UNK
     Route: 048
     Dates: start: 200010, end: 200310
  3. ACTONEL [Suspect]
     Indication: OSTEOPOROSIS
     Dosage: 35 MG, QW
     Dates: start: 200310, end: 201005
  4. VERAPAMIL [Concomitant]
     Indication: HYPERTENSION
     Dosage: 240 MG, QD
  5. HYDROCHLOROTHIAZIDE (+) TRIAMTERENE [Concomitant]
     Indication: HYPERTENSION
     Dosage: UNK
     Dates: start: 1982
  6. LOSARTAN POTASSIUM [Concomitant]
     Indication: HYPERTENSION
     Dosage: UNK
     Dates: start: 1982
  7. ADVAIR [Concomitant]
     Indication: HYPERSENSITIVITY
     Dosage: 250 MG, BID
     Route: 055
     Dates: start: 2002
  8. CLARITIN [Concomitant]
     Indication: HYPERSENSITIVITY
     Dosage: 10 MG, QD
     Route: 048
     Dates: start: 2002

REACTIONS (23)
  - Femur fracture [Unknown]
  - Fall [Unknown]
  - Intramedullary rod insertion [Unknown]
  - Intramedullary rod insertion [Unknown]
  - Low turnover osteopathy [Unknown]
  - Femur fracture [Unknown]
  - Meniscus operation [Unknown]
  - Knee operation [Unknown]
  - Renal failure chronic [Not Recovered/Not Resolved]
  - Femur fracture [Unknown]
  - Large intestine polyp [Unknown]
  - Adverse event [Unknown]
  - Lymphadenopathy [Unknown]
  - Anaemia [Unknown]
  - Adverse event [Unknown]
  - Hyperlipidaemia [Unknown]
  - Asthma [Unknown]
  - Osteopenia [Unknown]
  - Arthropathy [Unknown]
  - Osteoarthritis [Unknown]
  - Exostosis [Unknown]
  - Rib fracture [Unknown]
  - Oedema peripheral [Unknown]
